FAERS Safety Report 7565032-3 (Version None)
Quarter: 2011Q2

REPORT INFORMATION
  Report Type: 
  Country: None (occurrence: None)
  Receive Date: 20110622
  Receipt Date: 20110421
  Transmission Date: 20111010
  Serious: Yes (Death)
  Sender: FDA-Public Use
  Company Number: US-MYLANLABS-2011S1007349

PATIENT
  Age: 86 Year
  Sex: Female
  Weight: 40.82 kg

DRUGS (1)
  1. CLOZAPINE [Suspect]

REACTIONS (2)
  - PARKINSON'S DISEASE [None]
  - FAILURE TO THRIVE [None]
